FAERS Safety Report 8879642 (Version 2)
Quarter: 2012Q4

REPORT INFORMATION
  Report Type: 
  Country: SE (occurrence: SE)
  Receive Date: 20121101
  Receipt Date: 20121211
  Transmission Date: 20130627
  Serious: Yes (Other)
  Sender: FDA-Public Use
  Company Number: SE-ASTELLAS-2012EU009483

PATIENT
  Age: 77 Year
  Sex: Female

DRUGS (2)
  1. VESICARE [Suspect]
     Indication: HYPERTONIC BLADDER
     Dosage: 5 mg, Unknown/D
     Route: 065
  2. VESICARE [Suspect]
     Indication: INCONTINENCE

REACTIONS (2)
  - Peroneal nerve palsy [Not Recovered/Not Resolved]
  - Lumbar spinal stenosis [Unknown]
